FAERS Safety Report 10971776 (Version 1)
Quarter: 2015Q1

REPORT INFORMATION
  Report Type: Spontaneous
  Country: RU (occurrence: RU)
  Receive Date: 20150331
  Receipt Date: 20150331
  Transmission Date: 20150721
  Serious: Yes (Hospitalization, Other)
  Sender: FDA-Public Use
  Company Number: RU-BAYER-2015-067973

PATIENT
  Age: 42 Year
  Sex: Male
  Weight: 70 kg

DRUGS (1)
  1. ULTRAVIST [Suspect]
     Active Substance: IOPROMIDE
     Indication: ARTERIOGRAM CORONARY
     Dosage: 100 ML, ONCE (LEFT CORONARY ARTERY)
     Route: 022
     Dates: start: 20150318, end: 20150318

REACTIONS (4)
  - Electrocardiogram ST segment elevation [None]
  - Ventricular tachycardia [Recovered/Resolved]
  - Pain [Recovered/Resolved]
  - Ventricular extrasystoles [Recovered/Resolved]

NARRATIVE: CASE EVENT DATE: 20150318
